FAERS Safety Report 5234715-2 (Version None)
Quarter: 2007Q1

REPORT INFORMATION
  Report Type: 
  Country: None (occurrence: None)
  Receive Date: 20070209
  Receipt Date: 20070130
  Transmission Date: 20070707
  Serious: Yes (Hospitalization, Other)
  Sender: FDA-Public Use
  Company Number: BR-PFIZER INC-2006052483

PATIENT
  Sex: Male

DRUGS (6)
  1. CADUET [Suspect]
     Indication: DYSLIPIDAEMIA
     Dosage: TEXT:5MG/10MG
     Route: 048
  2. CADUET [Suspect]
     Indication: HYPERTENSION
  3. VALSARTAN [Concomitant]
     Route: 048
  4. ALLOPURINOL SODIUM [Concomitant]
     Route: 048
     Dates: start: 20060101, end: 20060801
  5. COLCHICINE [Concomitant]
     Route: 048
     Dates: start: 20060101, end: 20060801
  6. HYDROCHLOROTHIAZIDE [Concomitant]
     Route: 048

REACTIONS (9)
  - ABDOMINAL HERNIA REPAIR [None]
  - CHOLELITHIASIS [None]
  - GALLBLADDER DISORDER [None]
  - GALLBLADDER ENLARGEMENT [None]
  - HEPATIC ENZYME INCREASED [None]
  - HEPATIC STEATOSIS [None]
  - MACULAR DEGENERATION [None]
  - MYOCARDIAL INFARCTION [None]
  - VENOUS OCCLUSION [None]
